FAERS Safety Report 11156991 (Version 5)
Quarter: 2015Q4

REPORT INFORMATION
  Report Type: Spontaneous
  Country: ES (occurrence: ES)
  Receive Date: 20150602
  Receipt Date: 20151016
  Transmission Date: 20160304
  Serious: Yes (Hospitalization, Other)
  Sender: FDA-Public Use
  Company Number: ES-GILEAD-2015-0155710

PATIENT
  Age: 24 Year
  Sex: Male

DRUGS (1)
  1. HARVONI [Suspect]
     Active Substance: LEDIPASVIR\SOFOSBUVIR
     Indication: ACUTE HEPATITIS C
     Dosage: UNK
     Route: 065
     Dates: start: 20150512, end: 20150619

REACTIONS (3)
  - Cardiac flutter [Unknown]
  - Off label use [Unknown]
  - Complications of transplanted lung [Unknown]

NARRATIVE: CASE EVENT DATE: 20150512
